FAERS Safety Report 8253975-7 (Version None)
Quarter: 2012Q2

REPORT INFORMATION
  Report Type: 
  Country: None (occurrence: None)
  Receive Date: 20120402
  Receipt Date: 20120319
  Transmission Date: 20120825
  Serious: No
  Sender: FDA-Public Use
  Company Number: US-AMGEN-USASP2012017625

PATIENT
  Age: 56 Year
  Sex: Female

DRUGS (10)
  1. ACCOLATE [Concomitant]
     Dosage: UNK
  2. AMITRIPTYLINE HCL [Concomitant]
     Dosage: UNK
  3. ADVAIR DISKUS 100/50 [Concomitant]
     Dosage: UNK
  4. PANTOPRAZOLE [Concomitant]
     Dosage: UNK
  5. ENBREL [Suspect]
     Indication: PSORIATIC ARTHROPATHY
     Dosage: 50 MG, UNK
     Dates: start: 20120101
  6. FOSAMAX [Concomitant]
     Dosage: UNK
  7. SPIRIVA [Concomitant]
     Dosage: UNK
  8. THEOPHYLLINE [Concomitant]
     Dosage: UNK
  9. VICODIN [Concomitant]
     Dosage: UNK
  10. LEVOTHYROXINE SODIUM [Concomitant]
     Dosage: UNK

REACTIONS (1)
  - ALOPECIA [None]
